FAERS Safety Report 10248347 (Version 1)
Quarter: 2014Q2

REPORT INFORMATION
  Report Type: Spontaneous
  Country: US (occurrence: US)
  Receive Date: 20140620
  Receipt Date: 20140620
  Transmission Date: 20141212
  Serious: No
  Sender: FDA-Public Use
  Company Number: US-DRREDDYS-USA/USA/14/0040229

PATIENT
  Age: 60 Year
  Sex: Female

DRUGS (8)
  1. VALACYCLOVIR TABLETS [Suspect]
     Indication: PRODUCT USED FOR UNKNOWN INDICATION
     Route: 048
  2. IBUPROFEN [Concomitant]
     Indication: PRODUCT USED FOR UNKNOWN INDICATION
     Route: 065
  3. ZOLPIDEM [Concomitant]
     Indication: PRODUCT USED FOR UNKNOWN INDICATION
     Route: 065
  4. BORTEZOMIB [Concomitant]
     Indication: CHEMOTHERAPY
     Route: 065
  5. LENALIDOMIDE [Concomitant]
     Indication: CHEMOTHERAPY
     Route: 065
  6. LIPOSOMAL DOXORUBICIN [Concomitant]
     Indication: CHEMOTHERAPY
     Route: 065
  7. DEXAMETHASONE [Concomitant]
     Indication: CHEMOTHERAPY
     Route: 065
  8. ASPIRIN [Concomitant]
     Indication: PRODUCT USED FOR UNKNOWN INDICATION
     Route: 065

REACTIONS (1)
  - Rash [Recovered/Resolved]
